FAERS Safety Report 20176534 (Version 1)
Quarter: 2021Q4

REPORT INFORMATION
  Report Type: Spontaneous
  Country: ES (occurrence: ES)
  Receive Date: 20211213
  Receipt Date: 20211213
  Transmission Date: 20220303
  Serious: Yes (Hospitalization, Disabling)
  Sender: FDA-Public Use
  Company Number: None

PATIENT
  Age: 50 Year
  Sex: Male
  Weight: 110 kg

DRUGS (2)
  1. NEXAVAR [Suspect]
     Active Substance: SORAFENIB
     Indication: Hepatocellular carcinoma
     Dosage: 400 MG, BID
     Route: 048
     Dates: start: 20201008, end: 20211119
  2. TENOFOVIR [Concomitant]
     Active Substance: TENOFOVIR
     Indication: Hepatitis B
     Dosage: UNK

REACTIONS (4)
  - Fournier^s gangrene [Recovering/Resolving]
  - Hidradenitis [Recovering/Resolving]
  - Quality of life decreased [Recovering/Resolving]
  - Diffuse alopecia [Recovering/Resolving]

NARRATIVE: CASE EVENT DATE: 20201021
